FAERS Safety Report 13473984 (Version 1)
Quarter: 2017Q2

REPORT INFORMATION
  Report Type: Spontaneous
  Country: US (occurrence: US)
  Receive Date: 20170424
  Receipt Date: 20170424
  Transmission Date: 20170830
  Serious: No
  Sender: FDA-Public Use
  Company Number: GXBR2017US000722

PATIENT
  Sex: Female

DRUGS (1)
  1. LORAZEPAM ACTAVIS 2MG [Suspect]
     Active Substance: LORAZEPAM
     Indication: PRODUCT USED FOR UNKNOWN INDICATION
     Dosage: 2 MG, QHS
     Route: 048

REACTIONS (1)
  - Insomnia [Not Recovered/Not Resolved]
